FAERS Safety Report 4458442-4 (Version None)
Quarter: 2004Q3

REPORT INFORMATION
  Report Type: 
  Country: None (occurrence: None)
  Receive Date: 20040922
  Receipt Date: 20031029
  Transmission Date: 20050211
  Serious: Yes (Hospitalization)
  Sender: FDA-Public Use
  Company Number: US-SHR-03-014839

PATIENT
  Age: 53 Year
  Sex: Male
  Weight: 79.4 kg

DRUGS (6)
  1. BETASERON [Suspect]
     Indication: MULTIPLE SCLEROSIS
     Dosage: 8 MIU, EVERY 2D, SUBCUTANEOUS
     Route: 058
     Dates: start: 19940401
  2. TYLENOL [Concomitant]
  3. LOTREL [Concomitant]
  4. METOPROLOL [Concomitant]
  5. ALLOPURINOL [Concomitant]
  6. NAPROXEN [Concomitant]

REACTIONS (2)
  - INJECTION SITE CELLULITIS [None]
  - INJECTION SITE REACTION [None]
